FAERS Safety Report 8250702-4 (Version None)
Quarter: 2012Q2

REPORT INFORMATION
  Report Type: 
  Country: None (occurrence: None)
  Receive Date: 20120402
  Receipt Date: 20120326
  Transmission Date: 20120825
  Serious: Yes (Other)
  Sender: FDA-Public Use
  Company Number: US-PFIZER INC-2012077642

PATIENT
  Sex: Female
  Weight: 59.9 kg

DRUGS (6)
  1. PREMARIN [Suspect]
     Indication: HAEMOSTASIS
  2. PREMARIN [Suspect]
     Indication: PREOPERATIVE HORMONE TREATMENT
  3. PREMARIN [Suspect]
     Indication: OFF LABEL USE
     Dosage: UNK, 2X/WEEK
     Route: 067
     Dates: start: 20110101
  4. ANAGRELIDE [Concomitant]
     Indication: POLYCYTHAEMIA VERA
     Dosage: 1 MG, DAILY
  5. PREMARIN [Suspect]
     Indication: POST PROCEDURAL HAEMORRHAGE
  6. HYDROXYUREA [Concomitant]
     Indication: POLYCYTHAEMIA VERA
     Dosage: 500 MG, 2X/DAY

REACTIONS (2)
  - DRUG INEFFECTIVE FOR UNAPPROVED INDICATION [None]
  - POST PROCEDURAL HAEMORRHAGE [None]
